FAERS Safety Report 11029780 (Version 2)
Quarter: 2015Q2

REPORT INFORMATION
  Report Type: Spontaneous
  Country: BR (occurrence: BR)
  Receive Date: 20150415
  Receipt Date: 20150428
  Transmission Date: 20150821
  Serious: Yes (Death, Hospitalization)
  Sender: FDA-Public Use
  Company Number: BR-SA-2015SA047082

PATIENT
  Sex: Female

DRUGS (2)
  1. QUETIAPINE [Concomitant]
     Active Substance: QUETIAPINE
     Indication: DIABETES MELLITUS
     Dosage: 2 TABLETS DAILY
     Dates: start: 2010
  2. LANTUS [Suspect]
     Active Substance: INSULIN GLARGINE
     Indication: TYPE 1 DIABETES MELLITUS
     Route: 065
     Dates: start: 2005, end: 20150408

REACTIONS (2)
  - Diabetic complication [Fatal]
  - Post procedural complication [Fatal]
